FAERS Safety Report 5586179-7 (Version None)
Quarter: 2007Q4

REPORT INFORMATION
  Report Type: 
  Country: None (occurrence: None)
  Receive Date: 20071203
  Receipt Date: 20070814
  Transmission Date: 20080405
  Serious: Yes (Other)
  Sender: FDA-Public Use
  Company Number: 2007067418

PATIENT
  Age: 80 Year
  Sex: Female
  Weight: 72.6 kg

DRUGS (3)
  1. ZYVOX [Suspect]
     Indication: WOUND INFECTION BACTERIAL
     Dosage: INTRAVENOUS
     Route: 042
     Dates: start: 20070804
  2. INSULIN [Concomitant]
  3. GLUCOPHAGE [Concomitant]

REACTIONS (4)
  - ANOREXIA [None]
  - BLINDNESS [None]
  - NAUSEA [None]
  - VISION BLURRED [None]
